FAERS Safety Report 19144834 (Version 1)
Quarter: 2021Q2

REPORT INFORMATION
  Report Type: Spontaneous
  Country: DE (occurrence: DE)
  Receive Date: 20210416
  Receipt Date: 20210416
  Transmission Date: 20210717
  Serious: Yes (Hospitalization, Other)
  Sender: FDA-Public Use
  Company Number: DE-HETERO-2017HINSPO0484

PATIENT

DRUGS (12)
  1. AMIODARONE [Concomitant]
     Active Substance: AMIODARONE
     Indication: TACHYARRHYTHMIA
  2. LEVETIRACETAM. [Suspect]
     Active Substance: LEVETIRACETAM
     Dosage: 1000 MILLIGRAM, QD
     Route: 064
     Dates: start: 20160522, end: 20170117
  3. ILOPROST. [Concomitant]
     Active Substance: ILOPROST
     Indication: PULMONARY HYPERTENSION
     Dosage: UNK
     Route: 065
  4. ZONEGRAN [Suspect]
     Active Substance: ZONISAMIDE
     Indication: FOETAL EXPOSURE DURING PREGNANCY
     Dosage: 200 MILLIGRAM, QD
     Route: 064
     Dates: start: 20160522, end: 20170117
  5. CARBAMAZEPINE. [Suspect]
     Active Substance: CARBAMAZEPINE
     Indication: EPILEPSY
     Dosage: 500 MG, BID
     Route: 064
     Dates: start: 20160508, end: 20170117
  6. CARBAMAZEPINE. [Suspect]
     Active Substance: CARBAMAZEPINE
     Dosage: 1000 MILLIGRAM, QD
     Route: 064
     Dates: start: 20160522, end: 20170117
  7. LEVETIRACETAM. [Suspect]
     Active Substance: LEVETIRACETAM
     Indication: FOETAL EXPOSURE DURING PREGNANCY
     Dosage: 1000 MILLIGRAM, QD
     Route: 064
     Dates: start: 20160508, end: 20170117
  8. ZONEGRAN [Suspect]
     Active Substance: ZONISAMIDE
     Indication: EPILEPSY
     Dosage: 200 MG, QD
     Route: 064
     Dates: start: 20160508, end: 20170117
  9. CARBAMAZEPINE. [Suspect]
     Active Substance: CARBAMAZEPINE
     Indication: FOETAL EXPOSURE DURING PREGNANCY
     Dosage: 1000 MILLIGRAM, QD
     Route: 064
     Dates: start: 20160508, end: 20170117
  10. PROPAFENONE. [Concomitant]
     Active Substance: PROPAFENONE
     Indication: TACHYARRHYTHMIA
     Dosage: UNKNOWN
     Route: 065
  11. AMIODARONE [Concomitant]
     Active Substance: AMIODARONE
     Indication: HYPOTENSION
     Dosage: UNKNOWN
     Route: 065
     Dates: start: 201701
  12. LEVETIRACETAM. [Suspect]
     Active Substance: LEVETIRACETAM
     Indication: EPILEPSY
     Dosage: 500 MG, BID
     Route: 064
     Dates: start: 20160508, end: 20170117

REACTIONS (10)
  - Respiratory disorder neonatal [Recovered/Resolved]
  - Disseminated intravascular coagulation in newborn [Recovered/Resolved]
  - Foetal exposure during pregnancy [Recovered/Resolved]
  - Premature baby [Recovered/Resolved]
  - Small for dates baby [Unknown]
  - Low birth weight baby [Unknown]
  - Tachyarrhythmia [Not Recovered/Not Resolved]
  - Pulmonary hypertension [Recovered/Resolved]
  - Neonatal hypotension [Recovered/Resolved]
  - Neonatal pneumonia [Recovered/Resolved]

NARRATIVE: CASE EVENT DATE: 2016
